FAERS Safety Report 6700319-5 (Version None)
Quarter: 2010Q2

REPORT INFORMATION
  Report Type: 
  Country: None (occurrence: None)
  Receive Date: 20100428
  Receipt Date: 20100423
  Transmission Date: 20101027
  Serious: Yes (Other)
  Sender: FDA-Public Use
  Company Number: NZ-ROCHE-665768

PATIENT
  Sex: Male

DRUGS (2)
  1. XELODA [Suspect]
     Route: 048
  2. OXALIPLATINE [Concomitant]
     Route: 042

REACTIONS (7)
  - DYSGEUSIA [None]
  - FALL [None]
  - FATIGUE [None]
  - NAUSEA [None]
  - NEUROPATHY PERIPHERAL [None]
  - POLYURIA [None]
  - WEIGHT DECREASED [None]
